FAERS Safety Report 4796766-1 (Version None)
Quarter: 2005Q4

REPORT INFORMATION
  Report Type: 
  Country: None (occurrence: None)
  Receive Date: 20051012
  Receipt Date: 20051002
  Transmission Date: 20060501
  Serious: Yes (Hospitalization)
  Sender: FDA-Public Use
  Company Number: DL2005378

PATIENT
  Age: 29 Year
  Sex: Female
  Weight: 104.3273 kg

DRUGS (2)
  1. MIFEPRISTONE TABLETS, 200 MG (DANCO LABS) [Suspect]
     Indication: ABORTION INDUCED
     Dosage: 200 MG, ORAL
     Route: 048
     Dates: start: 20050714
  2. MISOPROSTOL [Suspect]
     Dosage: 800 MCG, VAGINAL
     Route: 067
     Dates: start: 20050715

REACTIONS (9)
  - ABORTION INFECTED [None]
  - BACTEROIDES INFECTION [None]
  - DYSURIA [None]
  - FALLOPIAN TUBE DISORDER [None]
  - MUSCLE SPASMS [None]
  - NECROSIS [None]
  - SHOCK [None]
  - URINARY TRACT INFECTION [None]
  - UTERINE DISORDER [None]
